FAERS Safety Report 25208629 (Version 1)
Quarter: 2025Q2

REPORT INFORMATION
  Report Type: Report from Study
  Country: IN (occurrence: IN)
  Receive Date: 20250417
  Receipt Date: 20250417
  Transmission Date: 20250716
  Serious: Yes (Death)
  Sender: ROCHE
  Company Number: IN-ROCHE-10000178447

PATIENT
  Age: 42 Year
  Sex: Male

DRUGS (1)
  1. ALECENSA [Suspect]
     Active Substance: ALECTINIB HYDROCHLORIDE
     Indication: Lung neoplasm malignant
     Route: 048
     Dates: start: 20241218

REACTIONS (6)
  - Dizziness [Unknown]
  - Asthenia [Unknown]
  - Visual impairment [Unknown]
  - Gait disturbance [Unknown]
  - Hypersomnia [Unknown]
  - Death [Fatal]
